FAERS Safety Report 5879494-0 (Version None)
Quarter: 2008Q3

REPORT INFORMATION
  Report Type: 
  Country: None (occurrence: None)
  Receive Date: 20080912
  Receipt Date: 20080905
  Transmission Date: 20090109
  Serious: Yes (Hospitalization)
  Sender: FDA-Public Use
  Company Number: JP-AVENTIS-200812858JP

PATIENT
  Sex: Male

DRUGS (1)
  1. LANTUS [Suspect]
     Dosage: DOSE: 30 UNITS
     Route: 058

REACTIONS (1)
  - BLOOD GLUCOSE INCREASED [None]
